FAERS Safety Report 24640456 (Version 1)
Quarter: 2024Q4

REPORT INFORMATION
  Report Type: Spontaneous
  Country: HR (occurrence: HR)
  Receive Date: 20241120
  Receipt Date: 20241120
  Transmission Date: 20250114
  Serious: Yes (Hospitalization, Other)
  Sender: CELLTRION
  Company Number: HR-CELLTRION INC.-2024HR028496

PATIENT

DRUGS (4)
  1. RITUXIMAB [Suspect]
     Active Substance: RITUXIMAB
     Indication: Antisynthetase syndrome
     Dosage: 2X1 G/14 DAYS
     Dates: start: 2021
  2. MYCOPHENOLATE MOFETIL [Concomitant]
     Active Substance: MYCOPHENOLATE MOFETIL
     Indication: Antisynthetase syndrome
     Dosage: UNK
     Dates: start: 2021
  3. MYCOPHENOLATE MOFETIL [Concomitant]
     Active Substance: MYCOPHENOLATE MOFETIL
     Dosage: UP TO 3 G DAILY
  4. HUMAN IMMUNOGLOBULIN G [Concomitant]
     Active Substance: HUMAN IMMUNOGLOBULIN G
     Indication: Antisynthetase syndrome
     Dosage: IMMUNOMODULATION DOSE
     Route: 042
     Dates: start: 2021

REACTIONS (6)
  - JC virus infection [Unknown]
  - Salmonella test positive [Recovered/Resolved]
  - Pneumocystis jirovecii infection [Recovered/Resolved]
  - Herpes zoster [Unknown]
  - Secondary immunodeficiency [Unknown]
  - Intentional product use issue [Unknown]
